FAERS Safety Report 16286866 (Version 1)
Quarter: 2019Q2

REPORT INFORMATION
  Report Type: Report from Study
  Country: FR (occurrence: FR)
  Receive Date: 20190508
  Receipt Date: 20190508
  Transmission Date: 20190711
  Serious: Yes (Death)
  Sender: FDA-Public Use
  Company Number: FR-PFIZER INC-2019195632

PATIENT
  Age: 74 Year
  Sex: Female

DRUGS (1)
  1. LORLATINIB [Suspect]
     Active Substance: LORLATINIB
     Dosage: 100 MG, UNK
     Dates: start: 20181129, end: 20190214

REACTIONS (1)
  - Death [Fatal]

NARRATIVE: CASE EVENT DATE: 20190419
